FAERS Safety Report 7593052-1 (Version None)
Quarter: 2011Q3

REPORT INFORMATION
  Report Type: 
  Country: None (occurrence: None)
  Receive Date: 20110706
  Receipt Date: 20110628
  Transmission Date: 20111222
  Serious: Yes (Other)
  Sender: FDA-Public Use
  Company Number: SG-ROCHE-786012

PATIENT

DRUGS (1)
  1. ACCUTANE [Suspect]
     Route: 048

REACTIONS (2)
  - LYMPHADENOPATHY [None]
  - PYREXIA [None]
